FAERS Safety Report 21992525 (Version 1)
Quarter: 2023Q1

REPORT INFORMATION
  Report Type: Spontaneous
  Country: US (occurrence: US)
  Receive Date: 20230215
  Receipt Date: 20230215
  Transmission Date: 20230418
  Serious: No
  Sender: FDA-Public Use
  Company Number: US-PERRIGO-22US013442

PATIENT
  Age: 3 Year
  Sex: Female
  Weight: 15.87 kg

DRUGS (1)
  1. OMEPRAZOLE [Suspect]
     Active Substance: OMEPRAZOLE
     Indication: Accidental exposure to product
     Dosage: APPROX. 0.25 OF SINGLE TABLET
     Route: 048
     Dates: start: 20221006, end: 20221006

REACTIONS (2)
  - Product after taste [Recovered/Resolved]
  - Accidental exposure to product by child [Unknown]

NARRATIVE: CASE EVENT DATE: 20221006
